FAERS Safety Report 8297907-4 (Version None)
Quarter: 2012Q2

REPORT INFORMATION
  Report Type: 
  Country: None (occurrence: None)
  Receive Date: 20120419
  Receipt Date: 20120416
  Transmission Date: 20120825
  Serious: Yes (Other)
  Sender: FDA-Public Use
  Company Number: PHHY2012JP032315

PATIENT
  Age: 58 Year
  Sex: Male

DRUGS (6)
  1. CILNIDIPINE [Concomitant]
     Indication: HYPERTENSION
  2. FUROSEMIDE [Concomitant]
     Indication: HYPERTENSION
  3. SPIRONOLACTONE [Concomitant]
     Indication: HYPERTENSION
  4. TRICHBRMETHIAZIDE [Concomitant]
     Indication: HYPERTENSION
  5. TELMISARTAN [Concomitant]
     Indication: HYPERTENSION
  6. ALISKIREN [Suspect]
     Indication: HYPERTENSION
     Dates: start: 20101101

REACTIONS (2)
  - PERITONEAL CLOUDY EFFLUENT [None]
  - ASCITES [None]
